FAERS Safety Report 7215117-6 (Version None)
Quarter: 2011Q1

REPORT INFORMATION
  Report Type: 
  Country: None (occurrence: None)
  Receive Date: 20110107
  Receipt Date: 20100823
  Transmission Date: 20110831
  Serious: No
  Sender: FDA-Public Use
  Company Number: A0877998A

PATIENT
  Age: 86 Year
  Sex: Female

DRUGS (3)
  1. CRESTOR [Concomitant]
  2. METFORMIN [Concomitant]
  3. LOVAZA [Suspect]
     Dosage: 1CAP FOUR TIMES PER DAY
     Route: 048
     Dates: start: 20090801

REACTIONS (2)
  - DRUG INEFFECTIVE [None]
  - MEDICATION RESIDUE [None]
